FAERS Safety Report 4338283-9 (Version None)
Quarter: 2004Q2

REPORT INFORMATION
  Report Type: 
  Country: None (occurrence: None)
  Receive Date: 20040414
  Receipt Date: 20040106
  Transmission Date: 20050107
  Serious: Yes (Death, Life-Threatening, Hospitalization, Other)
  Sender: FDA-Public Use
  Company Number: 200410009JP

PATIENT
  Age: 54 Year
  Sex: Female
  Weight: 50 kg

DRUGS (23)
  1. ARAVA [Suspect]
     Indication: RHEUMATOID ARTHRITIS
     Route: 048
     Dates: start: 20031222, end: 20040105
  2. PREDONINE [Concomitant]
     Indication: RHEUMATOID ARTHRITIS
     Route: 048
     Dates: end: 20040105
  3. INFREE S [Concomitant]
     Indication: RHEUMATOID ARTHRITIS
     Route: 048
     Dates: end: 20040105
  4. MINOMYCIN [Concomitant]
     Route: 048
     Dates: end: 20040105
  5. RHEUMATREX [Concomitant]
     Indication: RHEUMATOID ARTHRITIS
     Dosage: DOSE: 8MG/WEEK
     Route: 048
     Dates: end: 20040105
  6. FOLIAMIN [Concomitant]
     Dosage: DOSE: 5MG/WEEK
     Route: 048
     Dates: end: 20040105
  7. VOLTAREN SUPPOSITORIEN [Concomitant]
     Indication: RHEUMATOID ARTHRITIS
     Route: 054
     Dates: end: 20040105
  8. MAGNESIUM OXIDE [Concomitant]
     Indication: CONSTIPATION
     Route: 048
     Dates: start: 20040113, end: 20040129
  9. MYSLEE [Concomitant]
     Indication: INSOMNIA
     Route: 048
     Dates: start: 20040113
  10. FOSMICIN [Concomitant]
     Route: 042
     Dates: start: 20040105, end: 20040119
  11. CEFOTIAM HYDROCHLORIDE [Concomitant]
     Indication: PYREXIA
     Route: 042
     Dates: start: 20040106, end: 20040110
  12. CEFMETAZON [Concomitant]
     Indication: PYREXIA
     Route: 042
     Dates: start: 20040111, end: 20040113
  13. KAKODIN [Concomitant]
     Indication: SHOCK
     Route: 042
     Dates: start: 20040105, end: 20040118
  14. PREDONINE [Concomitant]
     Route: 042
     Dates: start: 20040106, end: 20040122
  15. PHYSIO [Concomitant]
     Indication: ELECTROLYTE SUBSTITUTION THERAPY
     Route: 041
     Dates: start: 20040105, end: 20040106
  16. AMINOTRIPA 1 [Concomitant]
     Route: 041
     Dates: start: 20040107, end: 20040203
  17. MULTIVITAMINS, PLAIN [Concomitant]
     Route: 041
     Dates: start: 20040107, end: 20040203
  18. ELEMENMIC [Concomitant]
     Dosage: DOSE: 1A
     Route: 041
     Dates: start: 20040107, end: 20040203
  19. ELIETEN [Concomitant]
     Indication: VOMITING
     Route: 041
     Dates: start: 20040106, end: 20040113
  20. ASPARA K [Concomitant]
     Indication: HYPOKALAEMIA
     Dosage: DOSE: 1A
     Route: 041
     Dates: start: 20040107, end: 20040109
  21. ALTAT [Concomitant]
     Indication: GASTRIC ULCER
     Dosage: DOSE: 2A
     Route: 041
     Dates: start: 20040106, end: 20040203
  22. SOLCOSERYL [Concomitant]
     Indication: GASTRIC ULCER
     Route: 041
     Dates: start: 20040105, end: 20040203
  23. HUMULIN R [Concomitant]
     Indication: HYPOGLYCAEMIA
     Route: 041
     Dates: start: 20040107, end: 20040203

REACTIONS (9)
  - ABDOMINAL PAIN [None]
  - AUTOIMMUNE HEPATITIS [None]
  - DISSEMINATED INTRAVASCULAR COAGULATION [None]
  - HAEMORRHAGIC CEREBRAL INFARCTION [None]
  - OCULOMUCOCUTANEOUS SYNDROME [None]
  - OESOPHAGEAL CANDIDIASIS [None]
  - RHABDOMYOLYSIS [None]
  - SUDDEN DEATH [None]
  - UPPER RESPIRATORY TRACT INFECTION [None]
